FAERS Safety Report 16322607 (Version 4)
Quarter: 2019Q3

REPORT INFORMATION
  Report Type: Report from Study
  Country: US (occurrence: US)
  Receive Date: 20190516
  Receipt Date: 20190916
  Transmission Date: 20191004
  Serious: Yes (Hospitalization)
  Sender: FDA-Public Use
  Company Number: US-ACTELION-A-NJ2019-188429

PATIENT
  Sex: Female
  Weight: 80.27 kg

DRUGS (25)
  1. VITAMIN B COMPLEX [Concomitant]
     Active Substance: CYANOCOBALAMIN\DEXPANTHENOL\NIACINAMIDE\PYRIDOXINE HYDROCHLORIDE\RIBOFLAVIN 5^-PHOSPHATE SODIUM\THIAMINE HYDROCHLORIDE\VITAMIN B COMPLEX
     Dosage: 1 TABLET QD
     Route: 048
  2. CARBOXYMETHYLCELLULOSE [Concomitant]
     Active Substance: CARBOXYMETHYLCELLULOSE
  3. LOPERAMIDE [Concomitant]
     Active Substance: LOPERAMIDE
  4. OPSUMIT [Suspect]
     Active Substance: MACITENTAN
     Indication: PULMONARY ARTERIAL HYPERTENSION
     Dosage: 10 MG, QD
     Route: 048
     Dates: start: 20140731
  5. DUONEB [Concomitant]
     Active Substance: ALBUTEROL SULFATE\IPRATROPIUM BROMIDE
  6. OCUVITE [Concomitant]
     Active Substance: VITAMINS
  7. UPTRAVI [Suspect]
     Active Substance: SELEXIPAG
     Indication: PULMONARY ARTERIAL HYPERTENSION
     Dosage: 1600 MCG, BID
     Route: 048
     Dates: start: 20180930
  8. ARFORMOTEROL [Concomitant]
     Active Substance: ARFORMOTEROL
     Dosage: 15 MCG/2ML
  9. DOXYCYCLINE. [Concomitant]
     Active Substance: DOXYCYCLINE
     Dosage: 100 MG CAPSULE EVERY 12 HOURS
  10. DIAZEPAM. [Concomitant]
     Active Substance: DIAZEPAM
     Dosage: 2.5 MG
  11. ACETAMINOPHEN. [Concomitant]
     Active Substance: ACETAMINOPHEN
     Dosage: 650 MG EVERY 6 HOURS
  12. CALCIUM CARBONATE AND VITAMIN D [Concomitant]
     Active Substance: CALCIUM CARBONATE\VITAMIN D
     Dosage: 600 MG, BID
     Route: 048
  13. SYNTHROID [Concomitant]
     Active Substance: LEVOTHYROXINE SODIUM
  14. BUDESONIDE. [Concomitant]
     Active Substance: BUDESONIDE
     Dosage: 0.5MG/2 ML
  15. GUAIFENESIN. [Concomitant]
     Active Substance: GUAIFENESIN
     Dosage: 10ML EVERY FOUR HOURS
  16. OXYGEN. [Concomitant]
     Active Substance: OXYGEN
  17. FISH OIL W/VITAMIN D NOS [Concomitant]
  18. FLUTICASONE PROPIONATE. [Concomitant]
     Active Substance: FLUTICASONE PROPIONATE
     Dosage: 50 MCG
  19. LORATADINE. [Concomitant]
     Active Substance: LORATADINE
     Dosage: 10 MG
  20. OMEPRAZOLE. [Concomitant]
     Active Substance: OMEPRAZOLE
     Dosage: 20 MG
  21. PROAIR RESPICLICK [Concomitant]
     Active Substance: ALBUTEROL SULFATE
     Dosage: INHALE 2 PUFFS EVERY 6 HOURS
  22. PREDNISONE. [Concomitant]
     Active Substance: PREDNISONE
  23. CYANOCOBALAMIN. [Concomitant]
     Active Substance: CYANOCOBALAMIN
     Dosage: 1000 MG, QD
     Route: 048
  24. ESCITALOPRAM [Concomitant]
     Active Substance: ESCITALOPRAM OXALATE
     Dosage: 20 MG, QD
     Route: 048
  25. XARELTO [Concomitant]
     Active Substance: RIVAROXABAN

REACTIONS (12)
  - Vomiting [Unknown]
  - Chest pain [Unknown]
  - Lung infection [Unknown]
  - Pulmonary vascular disorder [Unknown]
  - Pulmonary embolism [Unknown]
  - Cardiac failure congestive [Unknown]
  - Product administration error [Unknown]
  - Pulmonary oedema [Unknown]
  - Dyspnoea [Unknown]
  - Malaise [Unknown]
  - Bronchitis [Unknown]
  - Dyspnoea exertional [Unknown]
